FAERS Safety Report 8363485-4 (Version None)
Quarter: 2012Q2

REPORT INFORMATION
  Report Type: 
  Country: None (occurrence: None)
  Receive Date: 20120514
  Receipt Date: 20120503
  Transmission Date: 20120825
  Serious: Yes (Death)
  Sender: FDA-Public Use
  Company Number: DSA_55711_2012

PATIENT
  Sex: Female
  Weight: 81.6475 kg

DRUGS (15)
  1. ARTIFICIAL TEARS /00445101/ [Concomitant]
  2. ACETAMINOPHEN [Concomitant]
  3. DULCOLAX [Concomitant]
  4. FUROSEMIDE [Concomitant]
  5. XENAZINE [Suspect]
     Indication: DYSKINESIA
     Dosage: (12.5 MG BID ORAL)
     Route: 048
     Dates: start: 20100813, end: 20120305
  6. SOTALOL HCL [Concomitant]
  7. LIDOCAINE [Concomitant]
  8. MILK OF MAGNESIA TAB [Concomitant]
  9. LISPRO INSULIN [Concomitant]
  10. VITAMINS NOS [Concomitant]
  11. FLEET /01721201/ [Concomitant]
  12. ALBUTEROL SULFATE AND IPRATROPIUM BROMIDE [Concomitant]
  13. POTASSIUM CHLORIDE [Concomitant]
  14. LATANOPROST [Concomitant]
  15. COUMADIN [Concomitant]

REACTIONS (1)
  - DEATH [None]
